FAERS Safety Report 8525280-2 (Version None)
Quarter: 2012Q3

REPORT INFORMATION
  Report Type: 
  Country: None (occurrence: None)
  Receive Date: 20120720
  Receipt Date: 20120718
  Transmission Date: 20120928
  Serious: Yes (Hospitalization, Congenital Anomaly, Other)
  Sender: FDA-Public Use
  Company Number: PHHY2012CN034246

PATIENT
  Sex: Male
  Weight: 2 kg

DRUGS (1)
  1. SEBIVO [Suspect]
     Route: 064

REACTIONS (4)
  - HEAD CIRCUMFERENCE ABNORMAL [None]
  - SYPHILIS [None]
  - DEVELOPMENTAL DELAY [None]
  - FOETAL EXPOSURE DURING PREGNANCY [None]
